FAERS Safety Report 8965593 (Version 1)
Quarter: 2012Q4

REPORT INFORMATION
  Report Type: Spontaneous
  Country: US (occurrence: None)
  Receive Date: 20121212
  Receipt Date: 20121212
  Transmission Date: 20130627
  Serious: Yes (Other)
  Sender: FDA-Public Use
  Company Number: None

PATIENT
  Age: 63 Year
  Sex: Female
  Weight: 62.14 kg

DRUGS (1)
  1. LANSOPRAZOLE [Suspect]
     Dosage: stopped due to reaction
     Route: 048
     Dates: start: 20121106, end: 20121113

REACTIONS (5)
  - Tinnitus [None]
  - Gastrooesophageal reflux disease [None]
  - Back pain [None]
  - Capsule physical issue [None]
  - Product substitution issue [None]
